FAERS Safety Report 12601272 (Version 1)
Quarter: 2016Q3

REPORT INFORMATION
  Report Type: Spontaneous
  Country: FR (occurrence: FR)
  Receive Date: 20160728
  Receipt Date: 20160728
  Transmission Date: 20161109
  Serious: Yes (Hospitalization)
  Sender: FDA-Public Use
  Company Number: FR-009507513-1607FRA009607

PATIENT
  Age: 84 Year
  Sex: Male

DRUGS (9)
  1. SOLUPRED [Concomitant]
     Active Substance: PREDNISOLONE
     Indication: NON-HODGKIN^S LYMPHOMA
     Dosage: 90 MG, QD FROM DAY 1 TO DAY 5
     Route: 048
     Dates: start: 20150824, end: 20160418
  2. PERINDOPRIL [Concomitant]
     Active Substance: PERINDOPRIL
     Indication: HYPERTENSION
     Dosage: 5 MG QD
     Route: 048
     Dates: start: 2013
  3. PANTOPRAZOLE [Suspect]
     Active Substance: PANTOPRAZOLE SODIUM
     Indication: PRODUCT USED FOR UNKNOWN INDICATION
     Dosage: 40MG, QD
     Route: 048
     Dates: start: 201508
  4. CORTANCYL [Concomitant]
     Active Substance: PREDNISONE
     Indication: NON-HODGKIN^S LYMPHOMA
     Dosage: 2 DF PER CYCLE
     Route: 048
     Dates: start: 20151109, end: 20160418
  5. VINDESINE SULFATE [Concomitant]
     Active Substance: VINDESINE SULFATE
     Indication: NON-HODGKIN^S LYMPHOMA
     Dosage: 5.3 MG, IN ONE CYCLE-239 DAYS
     Route: 042
     Dates: start: 20150824, end: 20160418
  6. DOXORUBICIN HYDROCHLORIDE. [Concomitant]
     Active Substance: DOXORUBICIN HYDROCHLORIDE
     Indication: NON-HODGKIN^S LYMPHOMA
     Dosage: 44 MG, IN ONE CYCLE
     Route: 042
     Dates: start: 20151109, end: 20160418
  7. NASONEX [Suspect]
     Active Substance: MOMETASONE FUROATE
     Indication: PRODUCT USED FOR UNKNOWN INDICATION
     Dosage: 50  MICROGRAM/DOSE
     Route: 045
     Dates: start: 2013, end: 20160523
  8. CYCLOPHOSPHAMIDE. [Concomitant]
     Active Substance: CYCLOPHOSPHAMIDE
     Indication: NON-HODGKIN^S LYMPHOMA
     Dosage: 1300 MG, IN ONE CYCLE-239 DAYS
     Route: 042
     Dates: start: 20150824, end: 20160418
  9. RITUXIMAB [Concomitant]
     Active Substance: RITUXIMAB
     Indication: NON-HODGKIN^S LYMPHOMA
     Dosage: 1400 MG, IN ONE CYCLE
     Route: 058
     Dates: start: 20150908, end: 20160418

REACTIONS (1)
  - Hyponatraemia [Recovered/Resolved]

NARRATIVE: CASE EVENT DATE: 201605
